FAERS Safety Report 8860208 (Version 4)
Quarter: 2013Q3

REPORT INFORMATION
  Report Type: Spontaneous
  Country: FR (occurrence: FR)
  Receive Date: 20121025
  Receipt Date: 20130702
  Transmission Date: 20140515
  Serious: Yes (Hospitalization, Disabling, Other)
  Sender: FDA-Public Use
  Company Number: FR-JNJFOC-20121013266

PATIENT
  Age: 33 Year
  Sex: Female
  Weight: 48 kg

DRUGS (10)
  1. PROGRAF [Suspect]
     Indication: PRODUCT USED FOR UNKNOWN INDICATION
     Route: 048
  2. PROGRAF [Suspect]
     Indication: PRODUCT USED FOR UNKNOWN INDICATION
     Route: 048
  3. PROGRAF [Suspect]
     Indication: PRODUCT USED FOR UNKNOWN INDICATION
     Route: 048
  4. PROGRAF [Suspect]
     Indication: PRODUCT USED FOR UNKNOWN INDICATION
     Route: 048
     Dates: start: 20110510
  5. CERTICAN [Interacting]
     Indication: PRODUCT USED FOR UNKNOWN INDICATION
     Route: 048
  6. SPORANOX [Interacting]
     Indication: ASPERGILLUS INFECTION
     Route: 065
     Dates: start: 20110112
  7. LORAMYC [Concomitant]
     Route: 065
  8. ECULIZUMAB [Concomitant]
     Route: 065
     Dates: end: 20121114
  9. BACTRIM [Concomitant]
     Route: 065
  10. UNKNOWN MEDICATION [Concomitant]
     Route: 065

REACTIONS (32)
  - Haemolytic uraemic syndrome [Recovered/Resolved with Sequelae]
  - Overdose [Unknown]
  - Drug interaction [Unknown]
  - Renal failure acute [Unknown]
  - Calculus urinary [Unknown]
  - Gastroenteritis [Unknown]
  - Haemangioma [Unknown]
  - Aspergillus test positive [Unknown]
  - Transplant rejection [Unknown]
  - Thrombotic microangiopathy [Unknown]
  - Respiratory distress [Unknown]
  - Bacterial test [Unknown]
  - Immunosuppressant drug level decreased [Unknown]
  - Epistaxis [Unknown]
  - Haematoma [Unknown]
  - Thrombocytopenia [Unknown]
  - Toxicity to various agents [Unknown]
  - Thrombocytopenia [Unknown]
  - Vitamin B6 deficiency [Unknown]
  - Folate deficiency [Unknown]
  - Lung infection [Unknown]
  - Headache [Unknown]
  - Paraesthesia [Unknown]
  - Hypertension [Unknown]
  - Bone marrow disorder [Unknown]
  - Vomiting [Unknown]
  - Drug tolerance decreased [Unknown]
  - Cytomegalovirus test positive [Unknown]
  - Vitamin C deficiency [Unknown]
  - Off label use [Unknown]
  - Depression [Unknown]
  - Alopecia [Unknown]
